FAERS Safety Report 7319643-0 (Version None)
Quarter: 2011Q1

REPORT INFORMATION
  Report Type: 
  Country: None (occurrence: None)
  Receive Date: 20110228
  Receipt Date: 20100625
  Transmission Date: 20110831
  Serious: No
  Sender: FDA-Public Use
  Company Number: A0867230A

PATIENT
  Sex: Female

DRUGS (5)
  1. LAMICTAL [Suspect]
     Indication: BIPOLAR DISORDER
     Dosage: 50MG PER DAY
     Route: 048
     Dates: start: 20100611
  2. PROBIOTIC [Concomitant]
  3. MULTI-VITAMIN [Concomitant]
  4. LITHOBID [Concomitant]
  5. CALCIUM [Concomitant]

REACTIONS (2)
  - SKIN DISORDER [None]
  - PAIN [None]
